FAERS Safety Report 8967421 (Version 2)
Quarter: 2012Q4

REPORT INFORMATION
  Report Type: 
  Country: US (occurrence: US)
  Receive Date: 20121217
  Receipt Date: 20121227
  Transmission Date: 20130627
  Serious: Yes (Other)
  Sender: FDA-Public Use
  Company Number: US-BIOGENIDEC-2012BI058979

PATIENT
  Age: 50 None
  Sex: Female

DRUGS (2)
  1. AVONEX [Suspect]
     Indication: MULTIPLE SCLEROSIS
     Route: 030
     Dates: start: 19911201, end: 20080425
  2. AVONEX [Suspect]
     Indication: MULTIPLE SCLEROSIS
     Route: 030
     Dates: end: 2012

REACTIONS (9)
  - Neoplasm malignant [Unknown]
  - Cardiac operation [Unknown]
  - Sinusitis [Recovered/Resolved]
  - Bronchial disorder [Recovered/Resolved]
  - Atypical pneumonia [Recovered/Resolved]
  - Grief reaction [Unknown]
  - General physical health deterioration [Unknown]
  - Suicidal ideation [Unknown]
  - Drug hypersensitivity [Recovered/Resolved]
